FAERS Safety Report 7597215-0 (Version None)
Quarter: 2011Q3

REPORT INFORMATION
  Report Type: 
  Country: None (occurrence: None)
  Receive Date: 20110708
  Receipt Date: 20100923
  Transmission Date: 20111222
  Serious: No
  Sender: FDA-Public Use
  Company Number: US-GLAXOSMITHKLINE-A0882951A

PATIENT
  Age: 5 Year
  Sex: Female

DRUGS (3)
  1. FLOVENT [Suspect]
     Indication: PRODUCT USED FOR UNKNOWN INDICATION
     Dosage: 2PUFF TWICE PER DAY
     Route: 055
     Dates: start: 20070604
  2. EPIPEN [Concomitant]
  3. PROVENTIL-HFA [Concomitant]

REACTIONS (2)
  - COUGH [None]
  - PRODUCT QUALITY ISSUE [None]
